FAERS Safety Report 9539365 (Version 2)
Quarter: 2014Q2

REPORT INFORMATION
  Report Type: Spontaneous
  Country: IT (occurrence: IT)
  Receive Date: 20130920
  Receipt Date: 20140411
  Transmission Date: 20141212
  Serious: Yes (Life-Threatening)
  Sender: FDA-Public Use
  Company Number: IT-SANOFI-AVENTIS-2013SA091142

PATIENT
  Age: 66 Year
  Sex: Female

DRUGS (1)
  1. FERLIXIT [Suspect]
     Indication: ANAEMIA
     Dosage: SOLUTION FOR ORAL AND IV USE
     Route: 051
     Dates: start: 20130909, end: 20130909

REACTIONS (4)
  - Trismus [Recovered/Resolved]
  - Psychomotor hyperactivity [Recovered/Resolved]
  - Tachycardia [Recovered/Resolved]
  - Dyspnoea [Recovered/Resolved]
